FAERS Safety Report 11891840 (Version 1)
Quarter: 2016Q1

REPORT INFORMATION
  Report Type: Spontaneous
  Country: US (occurrence: None)
  Receive Date: 20160105
  Receipt Date: 20160105
  Transmission Date: 20160526
  Serious: Yes (Other)
  Sender: FDA-Public Use
  Company Number: None

PATIENT
  Age: 64 Year
  Sex: Female
  Weight: 62.6 kg

DRUGS (10)
  1. CLONAZEPAM. [Concomitant]
     Active Substance: CLONAZEPAM
  2. KEFIR WATER (PROBIOTIC) [Concomitant]
  3. VIT D-3 [Concomitant]
  4. MARSHMALLOW ROOT [Concomitant]
  5. FISH OIL [Concomitant]
     Active Substance: FISH OIL
  6. CIPRO [Suspect]
     Active Substance: CIPROFLOXACIN HYDROCHLORIDE
     Indication: BLOOD URINE PRESENT
     Route: 048
     Dates: start: 20151224, end: 20151227
  7. GENERIC CYTOMEL [Concomitant]
  8. VITAMIN B COMPLEX [Concomitant]
     Active Substance: CYANOCOBALAMIN\DEXPANTHENOL\NIACINAMIDE\PYRIDOXINE HYDROCHLORIDE\RIBOFLAVIN 5^-PHOSPHATE SODIUM\THIAMINE HYDROCHLORIDE\VITAMIN B COMPLEX
  9. HYDROCORTISONE. [Concomitant]
     Active Substance: HYDROCORTISONE
  10. OTC ALLERGY MEDS [Concomitant]

REACTIONS (3)
  - Joint stiffness [None]
  - Heart rate increased [None]
  - Arthralgia [None]

NARRATIVE: CASE EVENT DATE: 20151226
